FAERS Safety Report 8050866-1 (Version None)
Quarter: 2012Q1

REPORT INFORMATION
  Report Type: 
  Country: None (occurrence: None)
  Receive Date: 20120117
  Receipt Date: 20120104
  Transmission Date: 20120608
  Serious: Yes (Hospitalization)
  Sender: FDA-Public Use
  Company Number: PHHY2012FR001484

PATIENT
  Sex: Female

DRUGS (7)
  1. BISOPROLOL FUMARATE [Concomitant]
     Dosage: 1.25 MG, BID
  2. RAMIPRIL [Concomitant]
     Dosage: 1.25 MG, BID
  3. CLOZAPINE [Suspect]
     Dosage: 600 MG, DAILY
  4. BISOPROLOL FUMARATE [Concomitant]
     Dosage: 3.75 MG, QD
  5. CLOZAPINE [Suspect]
     Indication: SCHIZOPHRENIA
     Dosage: 400 MG, DAILY
     Dates: start: 20010101, end: 20111101
  6. POTASSIUM CHLORIDE [Concomitant]
     Dosage: 600 MG, BID
  7. PAROXETINE HCL [Concomitant]
     Dosage: 20 MG, DAILY

REACTIONS (21)
  - RED BLOOD CELL COUNT DECREASED [None]
  - MITRAL VALVE INCOMPETENCE [None]
  - ATRIAL FIBRILLATION [None]
  - PROTHROMBIN TIME RATIO INCREASED [None]
  - DYSPNOEA [None]
  - HYPOKINESIA [None]
  - BLOOD CREATININE DECREASED [None]
  - CONGESTIVE CARDIOMYOPATHY [None]
  - CENTRAL OBESITY [None]
  - DILATATION VENTRICULAR [None]
  - BILIRUBIN CONJUGATED ABNORMAL [None]
  - EJECTION FRACTION DECREASED [None]
  - N-TERMINAL PROHORMONE BRAIN NATRIURETIC PEPTIDE INCREASED [None]
  - PULSE ABSENT [None]
  - BUNDLE BRANCH BLOCK LEFT [None]
  - VENTRICULAR EXTRASYSTOLES [None]
  - SYSTOLIC DYSFUNCTION [None]
  - BLOOD CREATINE PHOSPHOKINASE INCREASED [None]
  - CARDIAC FAILURE [None]
  - ELECTROCARDIOGRAM QRS COMPLEX PROLONGED [None]
  - DILATATION ATRIAL [None]
